FAERS Safety Report 8926973 (Version 1)
Quarter: 2012Q4

REPORT INFORMATION
  Report Type: 
  Country: US (occurrence: US)
  Receive Date: 20121127
  Receipt Date: 20121127
  Transmission Date: 20130627
  Serious: No
  Sender: FDA-Public Use
  Company Number: US-BAYER-2012-123338

PATIENT
  Age: 60 Year
  Sex: Female
  Weight: 98 kg

DRUGS (3)
  1. ALEVE CAPLET/TABLET,MIDOL EXTENDED RELIEF CAPLET [Suspect]
     Indication: MUSCLE PAIN
     Dosage: Used Only One Time, 1 DF, ONCE
     Route: 048
     Dates: start: 20121114
  2. DIAZEPAM [Concomitant]
  3. IRON [FERROUS SULFATE] [Concomitant]

REACTIONS (1)
  - Drug ineffective [None]
